FAERS Safety Report 12236543 (Version 10)
Quarter: 2021Q4

REPORT INFORMATION
  Report Type: Other
  Country: AR (occurrence: AR)
  Receive Date: 20160405
  Receipt Date: 20211126
  Transmission Date: 20220303
  Serious: Yes (Hospitalization, Other)
  Sender: FDA-Public Use
  Company Number: AR-ROCHE-1632687

PATIENT
  Sex: Male
  Weight: 90 kg

DRUGS (20)
  1. XOLAIR [Suspect]
     Active Substance: OMALIZUMAB
     Indication: Asthma
     Dosage: 5 DF, QMO
     Route: 058
     Dates: start: 2011
  2. XOLAIR [Suspect]
     Active Substance: OMALIZUMAB
     Dosage: UNK
     Route: 065
     Dates: start: 2011, end: 201506
  3. XOLAIR [Suspect]
     Active Substance: OMALIZUMAB
     Dosage: 5 MONTHLY
     Route: 065
     Dates: start: 2013, end: 201506
  4. XOLAIR [Suspect]
     Active Substance: OMALIZUMAB
     Dosage: 150 MG, (5 MONTHLY)
     Route: 065
     Dates: start: 201509
  5. XOLAIR [Suspect]
     Active Substance: OMALIZUMAB
     Dosage: 150 MG, UNK
     Route: 065
     Dates: start: 201510
  6. XOLAIR [Suspect]
     Active Substance: OMALIZUMAB
     Dosage: 150 MG, (5 MONTHLY)
     Route: 065
     Dates: start: 201602
  7. XOLAIR [Suspect]
     Active Substance: OMALIZUMAB
     Dosage: 150 MG, (5 MONTHLY)
     Route: 065
     Dates: start: 2010
  8. XOLAIR [Suspect]
     Active Substance: OMALIZUMAB
     Dosage: UNK
     Route: 065
     Dates: start: 20180514
  9. XOLAIR [Suspect]
     Active Substance: OMALIZUMAB
     Dosage: UNK
     Route: 065
     Dates: start: 20180528
  10. XOLAIR [Suspect]
     Active Substance: OMALIZUMAB
     Dosage: UNK
     Route: 065
     Dates: start: 20200218, end: 20200218
  11. XOLAIR [Suspect]
     Active Substance: OMALIZUMAB
     Dosage: UNK
     Route: 065
     Dates: start: 20200303
  12. XOLAIR [Suspect]
     Active Substance: OMALIZUMAB
     Dosage: 750 MG
     Route: 065
     Dates: start: 20100312
  13. XOLAIR [Suspect]
     Active Substance: OMALIZUMAB
     Route: 065
     Dates: start: 20100312
  14. MONTELUKAST [Concomitant]
     Active Substance: MONTELUKAST SODIUM
  15. FLUTICASONE PROPIONATE [Concomitant]
     Active Substance: FLUTICASONE PROPIONATE
  16. ESOMEPRAZOLE [Concomitant]
     Active Substance: ESOMEPRAZOLE
  17. ALBUTEROL [Concomitant]
     Active Substance: ALBUTEROL
  18. FLUTICASONE [Concomitant]
     Active Substance: FLUTICASONE
  19. SERETIDE [Concomitant]
     Active Substance: FLUTICASONE PROPIONATE\SALMETEROL XINAFOATE
     Indication: Asthma
     Dosage: UNK, QD
     Route: 065
  20. PANTOPRAZOLE [Concomitant]
     Active Substance: PANTOPRAZOLE
     Indication: Gastrooesophageal reflux disease
     Dosage: 40 MG, QD
     Route: 065

REACTIONS (35)
  - Cardiac disorder [Unknown]
  - Arteriosclerosis coronary artery [Recovered/Resolved]
  - Syncope [Unknown]
  - Muscular weakness [Recovering/Resolving]
  - Chest pain [Recovered/Resolved]
  - Hyperhidrosis [Unknown]
  - Headache [Recovering/Resolving]
  - Agitation [Not Recovered/Not Resolved]
  - Dizziness [Recovering/Resolving]
  - Cerebrovascular accident [Recovering/Resolving]
  - Coronary artery thrombosis [Recovered/Resolved]
  - Gastrooesophageal reflux disease [Recovered/Resolved]
  - General physical health deterioration [Unknown]
  - Angina pectoris [Unknown]
  - Blood pressure increased [Unknown]
  - Vision blurred [Unknown]
  - Acute coronary syndrome [Unknown]
  - Hypotension [Unknown]
  - Stress [Recovered/Resolved]
  - Feeling abnormal [Not Recovered/Not Resolved]
  - Amnesia [Unknown]
  - Fall [Unknown]
  - Muscle spasms [Not Recovered/Not Resolved]
  - Hiatus hernia [Not Recovered/Not Resolved]
  - Dyspnoea [Recovering/Resolving]
  - Weight decreased [Recovering/Resolving]
  - Sleep apnoea syndrome [Unknown]
  - Back pain [Recovered/Resolved]
  - Neck pain [Recovered/Resolved]
  - Pain in extremity [Recovered/Resolved]
  - Conduction disorder [Unknown]
  - White blood cell count increased [Unknown]
  - Lymphocyte count increased [Unknown]
  - Granulocyte count increased [Unknown]
  - Snoring [Unknown]

NARRATIVE: CASE EVENT DATE: 20150101
